FAERS Safety Report 8542188-7 (Version None)
Quarter: 2012Q3

REPORT INFORMATION
  Report Type: 
  Country: None (occurrence: None)
  Receive Date: 20120726
  Receipt Date: 20120227
  Transmission Date: 20120928
  Serious: No
  Sender: FDA-Public Use
  Company Number: US-ASTRAZENECA-2011SE60112

PATIENT
  Age: 53 Year
  Sex: Female

DRUGS (2)
  1. SEROQUEL XR [Suspect]
     Indication: BIPOLAR DISORDER
     Route: 048
     Dates: start: 20111001, end: 20111120
  2. PROZAC [Concomitant]
     Indication: DEPRESSION

REACTIONS (1)
  - NYSTAGMUS [None]
